FAERS Safety Report 7412545-0 (Version None)
Quarter: 2011Q2

REPORT INFORMATION
  Report Type: 
  Country: None (occurrence: None)
  Receive Date: 20110404
  Receipt Date: 20110323
  Transmission Date: 20111010
  Serious: Yes (Other)
  Sender: FDA-Public Use
  Company Number: JP-2011-10540

PATIENT
  Age: 90 Year
  Sex: Male

DRUGS (14)
  1. ASPIRIN [Concomitant]
  2. PREDNISOLONE [Concomitant]
  3. SPIRIVA (TIOTROPIUM BROMIDE HYDRATE) INHALATION VAPOUR [Concomitant]
  4. ALDACTONE [Concomitant]
  5. HOKUNALIN:TAPE (TOLUBUTEROL) TRANSDERMAL PATCH [Concomitant]
  6. ITOROL (ISOSORBIDE MONONITRATE) TABLET [Concomitant]
  7. TAKEPRON (LANSOPRAZOLE) TABLET [Concomitant]
  8. LASIX [Concomitant]
  9. TANADOPA (DOCARPAMINE) GRANULES [Concomitant]
  10. UNIPHYL LA (THEOPHYLLINE) TABLET [Concomitant]
  11. SIGMART (NICORANDIL) TABLET [Concomitant]
  12. SAMSCA [Suspect]
     Dosage: 7.5 MG MILLIGRAM(S), QD, ORAL
     Route: 048
  13. THYRADIN S (LEVOTHYROXINE SODIUM) TABLET [Concomitant]
  14. METHYCOBAL (MECOBALAMIN) [Concomitant]

REACTIONS (2)
  - APALLIC SYNDROME [None]
  - CEREBRAL ARTERY EMBOLISM [None]
